FAERS Safety Report 15196300 (Version 2)
Quarter: 2018Q3

REPORT INFORMATION
  Report Type: Spontaneous
  Country: SK (occurrence: SK)
  Receive Date: 20180725
  Receipt Date: 20180803
  Transmission Date: 20181010
  Serious: Yes (Other)
  Sender: FDA-Public Use
  Company Number: SK-PFIZER INC-2018294061

PATIENT
  Age: 34 Year
  Sex: Female

DRUGS (5)
  1. IDARUBICIN HCL [Suspect]
     Active Substance: IDARUBICIN HYDROCHLORIDE
     Dosage: 5 MG/M2, DAILY (D. 1?4)
  2. ATRA [Suspect]
     Active Substance: TRETINOIN
     Indication: ACUTE PROMYELOCYTIC LEUKAEMIA
     Dosage: 45 MG, DAILY D. 1 ? TILL COMPLETE REMISION
  3. ATRA [Suspect]
     Active Substance: TRETINOIN
     Dosage: 45 MG, DAILY  D. 1?15
  4. IDARUBICIN HCL [Suspect]
     Active Substance: IDARUBICIN HYDROCHLORIDE
     Dosage: 12 MG, DAILY (D 2,4,6, 8)
  5. CYTARABINE. [Suspect]
     Active Substance: CYTARABINE
     Dosage: 1000 MG/M2, DAILY (D. 1?4)

REACTIONS (6)
  - Mucosal inflammation [Unknown]
  - Enterocolitis [Unknown]
  - Pancytopenia [Unknown]
  - Ileus paralytic [Unknown]
  - Pneumonia [Unknown]
  - Respiratory failure [Unknown]
